FAERS Safety Report 12608256 (Version 4)
Quarter: 2017Q4

REPORT INFORMATION
  Report Type: Report from Study
  Country: None (occurrence: US)
  Receive Date: 20160729
  Receipt Date: 20171208
  Transmission Date: 20180320
  Serious: Yes (Hospitalization, Other)
  Sender: FDA-Public Use
  Company Number: US-ABBVIE-16K-163-1633940-00

PATIENT
  Age: 27 Year
  Sex: Male

DRUGS (6)
  1. DULCOLAX NOS [Concomitant]
     Active Substance: BISACODYL OR DOCUSATE SODIUM
     Indication: PRODUCT USED FOR UNKNOWN INDICATION
  2. IMURAN [Concomitant]
     Active Substance: AZATHIOPRINE
     Indication: CROHN^S DISEASE
     Route: 048
  3. MIRALAX [Concomitant]
     Active Substance: POLYETHYLENE GLYCOL 3350
     Indication: CONSTIPATION PROPHYLAXIS
  4. HUMIRA [Suspect]
     Active Substance: ADALIMUMAB
     Indication: CROHN^S DISEASE
     Route: 058
     Dates: start: 20150925
  5. BACLOFEN. [Concomitant]
     Active Substance: BACLOFEN
     Indication: PRODUCT USED FOR UNKNOWN INDICATION
  6. PREDNISONE. [Concomitant]
     Active Substance: PREDNISONE
     Indication: PRODUCT USED FOR UNKNOWN INDICATION
     Dosage: WITH FOOD OR MILK

REACTIONS (6)
  - Groin pain [Not Recovered/Not Resolved]
  - Fibrosis [Not Recovered/Not Resolved]
  - Infection [Not Recovered/Not Resolved]
  - Mesenteritis [Unknown]
  - Back pain [Recovering/Resolving]
  - B-cell lymphoma stage IV [Not Recovered/Not Resolved]

NARRATIVE: CASE EVENT DATE: 2016
